FAERS Safety Report 24433263 (Version 2)
Quarter: 2024Q4

REPORT INFORMATION
  Report Type: Spontaneous
  Country: EG (occurrence: EG)
  Receive Date: 20241014
  Receipt Date: 20241120
  Transmission Date: 20250115
  Serious: Yes (Disabling, Other)
  Sender: PFIZER
  Company Number: EG-PFIZER INC-PV202400131047

PATIENT
  Age: 45 Year
  Sex: Female
  Weight: 75 kg

DRUGS (1)
  1. CARBOPLATIN [Suspect]
     Active Substance: CARBOPLATIN
     Dosage: 450MG/500ML

REACTIONS (7)
  - Neuropathy peripheral [Unknown]
  - Bone pain [Unknown]
  - Fatigue [Unknown]
  - Taste disorder [Unknown]
  - Diarrhoea [Unknown]
  - Vomiting [Unknown]
  - Skin lesion [Unknown]

NARRATIVE: CASE EVENT DATE: 20240703
